FAERS Safety Report 24141802 (Version 1)
Quarter: 2024Q3

REPORT INFORMATION
  Report Type: Spontaneous
  Country: FR (occurrence: FR)
  Receive Date: 20240726
  Receipt Date: 20240726
  Transmission Date: 20241017
  Serious: Yes (Life-Threatening)
  Sender: ROCHE
  Company Number: None

PATIENT
  Age: 67 Year
  Sex: Female
  Weight: 50 kg

DRUGS (14)
  1. RITUXIMAB [Suspect]
     Active Substance: RITUXIMAB
     Indication: Product used for unknown indication
     Route: 065
  2. IFOSFAMIDE [Suspect]
     Active Substance: IFOSFAMIDE
     Indication: Marginal zone lymphoma
     Route: 051
     Dates: start: 202305, end: 202305
  3. IBRUTINIB [Suspect]
     Active Substance: IBRUTINIB
     Indication: Product used for unknown indication
     Route: 065
  4. CYCLOPHOSPHAMIDE [Suspect]
     Active Substance: CYCLOPHOSPHAMIDE
     Indication: Product used for unknown indication
     Route: 051
     Dates: start: 201604, end: 201604
  5. CYCLOPHOSPHAMIDE [Suspect]
     Active Substance: CYCLOPHOSPHAMIDE
     Route: 051
     Dates: start: 201812, end: 201812
  6. DOXORUBICIN HYDROCHLORIDE [Suspect]
     Active Substance: DOXORUBICIN HYDROCHLORIDE
     Indication: Diffuse large B-cell lymphoma
     Route: 051
     Dates: start: 201812, end: 201812
  7. VINCRISTINE SULFATE [Suspect]
     Active Substance: VINCRISTINE SULFATE
     Indication: Diffuse large B-cell lymphoma
     Route: 051
     Dates: start: 201812, end: 201812
  8. ETOPOSIDE [Suspect]
     Active Substance: ETOPOSIDE
     Indication: Product used for unknown indication
     Route: 051
     Dates: start: 202305, end: 202305
  9. YESCARTA [Suspect]
     Active Substance: AXICABTAGENE CILOLEUCEL
     Indication: Product used for unknown indication
     Route: 051
     Dates: start: 20230608, end: 20230608
  10. BACTRIM [Concomitant]
     Active Substance: SULFAMETHOXAZOLE\TRIMETHOPRIM
  11. VALACYCLOVIR HYDROCHLORIDE [Concomitant]
     Active Substance: VALACYCLOVIR HYDROCHLORIDE
  12. CUVITRU 200 mg/ml, [Concomitant]
  13. FOLIC ACID [Concomitant]
     Active Substance: FOLIC ACID
  14. ZARZIO 30 MU/0,5 ml, [Concomitant]

REACTIONS (1)
  - Acute myeloid leukaemia [Recovering/Resolving]

NARRATIVE: CASE EVENT DATE: 20240215
